FAERS Safety Report 5817491-1 (Version None)
Quarter: 2008Q3

REPORT INFORMATION
  Report Type: 
  Country: None (occurrence: None)
  Receive Date: 20080722
  Receipt Date: 20080716
  Transmission Date: 20090109
  Serious: Yes (Other)
  Sender: FDA-Public Use
  Company Number: GR-AVENTIS-200816774GDDC

PATIENT
  Age: 46 Year
  Sex: Female

DRUGS (2)
  1. LEFLUNOMIDE [Suspect]
     Dosage: DOSE: UNK
  2. HUMIRA [Suspect]
     Dosage: DOSE: UNK

REACTIONS (1)
  - ENDOMETRIAL CANCER [None]
